FAERS Safety Report 6940712-9 (Version None)
Quarter: 2010Q3

REPORT INFORMATION
  Report Type: 
  Country: None (occurrence: None)
  Receive Date: 20100820
  Receipt Date: 20100810
  Transmission Date: 20110219
  Serious: Yes (Life-Threatening, Hospitalization, Other)
  Sender: FDA-Public Use
  Company Number: A-US2010-36531

PATIENT
  Age: 36 Year
  Sex: Female
  Weight: 53.1 kg

DRUGS (3)
  1. TRACLEER [Suspect]
     Indication: PULMONARY ARTERIAL HYPERTENSION
     Dosage: 125 MG BID ORAL
     Route: 048
     Dates: start: 20080207
  2. CALCIUM CHANNEL BLOCKERS [Concomitant]
  3. TRACLEER [Suspect]

REACTIONS (5)
  - ABORTION SPONTANEOUS [None]
  - DRUG EXPOSURE DURING PREGNANCY [None]
  - LOWER RESPIRATORY TRACT INFECTION [None]
  - PREGNANCY [None]
  - RESPIRATORY FAILURE [None]
